FAERS Safety Report 5023586-5 (Version None)
Quarter: 2006Q2

REPORT INFORMATION
  Report Type: 
  Country: None (occurrence: None)
  Receive Date: 20060428
  Receipt Date: 20060110
  Transmission Date: 20061013
  Serious: No
  Sender: FDA-Public Use
  Company Number: WAES 0601USA01205

PATIENT
  Sex: Female

DRUGS (1)
  1. EMEND [Suspect]
     Dosage: PO
     Route: 048

REACTIONS (1)
  - RASH [None]
